FAERS Safety Report 4924819-3 (Version None)
Quarter: 2006Q1

REPORT INFORMATION
  Report Type: 
  Country: None (occurrence: None)
  Receive Date: 20060227
  Receipt Date: 20051020
  Transmission Date: 20060701
  Serious: Yes (Hospitalization, Disabling)
  Sender: FDA-Public Use
  Company Number: US-MERCK-0510USA08166

PATIENT
  Age: 61 Year
  Sex: Female
  Weight: 86 kg

DRUGS (1)
  1. VIOXX [Suspect]
     Indication: ARTHRITIS
     Route: 048
     Dates: start: 20020422, end: 20040808

REACTIONS (8)
  - ANGINA PECTORIS [None]
  - CARDIAC DISORDER [None]
  - CARDIOVASCULAR DISORDER [None]
  - CHEST PAIN [None]
  - DEPRESSION [None]
  - DYSPNOEA [None]
  - EMBOLISM [None]
  - THROMBOSIS [None]
